FAERS Safety Report 13105578 (Version 1)
Quarter: 2017Q1

REPORT INFORMATION
  Report Type: Spontaneous
  Country: FR (occurrence: FR)
  Receive Date: 20170111
  Receipt Date: 20170111
  Transmission Date: 20170428
  Serious: Yes (Life-Threatening, Hospitalization)
  Sender: FDA-Public Use
  Company Number: FR-PFIZER INC-2017011416

PATIENT
  Age: 46 Year
  Sex: Female

DRUGS (6)
  1. STILNOX [Suspect]
     Active Substance: ZOLPIDEM TARTRATE
     Indication: POISONING DELIBERATE
     Dosage: 10 MG, 1X/DAY
  2. LYSANXIA [Suspect]
     Active Substance: PRAZEPAM
     Indication: POISONING DELIBERATE
     Dosage: 10 MG, DAILY
  3. ATENOLOL. [Suspect]
     Active Substance: ATENOLOL
     Indication: POISONING DELIBERATE
     Dosage: 250 MG, (5 PILLS OF TENORMINE 50 MG)
     Route: 065
     Dates: start: 20160605
  4. STILNOX [Suspect]
     Active Substance: ZOLPIDEM TARTRATE
     Dosage: 140 MG, (14 PILLS OF STILNOX)
     Dates: start: 20160605
  5. LYSANXIA [Suspect]
     Active Substance: PRAZEPAM
     Dosage: 100 MG, (10 PILLS OF LYSANXIA)
     Dates: start: 20160605
  6. OXYCONTIN [Suspect]
     Active Substance: OXYCODONE HYDROCHLORIDE
     Indication: POISONING DELIBERATE
     Dosage: 100 MG, (5 PILLS OF OXYCONTIN)
     Dates: start: 20160605

REACTIONS (4)
  - Sinus bradycardia [Recovered/Resolved]
  - Poisoning deliberate [Recovered/Resolved]
  - Depressed level of consciousness [Recovered/Resolved]
  - Hypotension [Recovered/Resolved]

NARRATIVE: CASE EVENT DATE: 20160605
